FAERS Safety Report 4396737-3 (Version None)
Quarter: 2004Q3

REPORT INFORMATION
  Report Type: 
  Country: None (occurrence: None)
  Receive Date: 20040709
  Receipt Date: 20040629
  Transmission Date: 20050211
  Serious: Yes (Death)
  Sender: FDA-Public Use
  Company Number: 2004EU000974

PATIENT
  Age: 45 Year
  Sex: Female

DRUGS (2)
  1. FK506 (TACROLIMUS) CAPSULE [Suspect]
     Indication: LIVER TRANSPLANT
     Dates: start: 20031204, end: 20031204
  2. FK506 (TACROLIMUS) CAPSULE [Suspect]
     Indication: LIVER TRANSPLANT
     Dates: start: 20031205

REACTIONS (2)
  - CARDIAC FAILURE [None]
  - RESPIRATORY FAILURE [None]
